FAERS Safety Report 20998645 (Version 6)
Quarter: 2022Q4

REPORT INFORMATION
  Report Type: Report from Study
  Country: US (occurrence: US)
  Receive Date: 20220623
  Receipt Date: 20221108
  Transmission Date: 20230112
  Serious: No
  Sender: FDA-Public Use
  Company Number: US-NOVARTISTESTPH-NVSC2022US144085

PATIENT
  Sex: Female

DRUGS (1)
  1. ENTRESTO [Suspect]
     Active Substance: SACUBITRIL\VALSARTAN
     Indication: Product used for unknown indication
     Dosage: 1 DOSAGE FORM, BID (24/26 MG)
     Route: 048
     Dates: start: 202206

REACTIONS (12)
  - Anxiety [Unknown]
  - Fear [Unknown]
  - Dyspnoea [Not Recovered/Not Resolved]
  - Gait disturbance [Unknown]
  - Limb discomfort [Unknown]
  - Poor quality sleep [Unknown]
  - Heart rate decreased [Unknown]
  - Temperature intolerance [Unknown]
  - Inappropriate schedule of product administration [Unknown]
  - Depression [Unknown]
  - COVID-19 [Unknown]
  - Hypoaesthesia [Unknown]
